FAERS Safety Report 7623774-5 (Version None)
Quarter: 2011Q3

REPORT INFORMATION
  Report Type: 
  Country: None (occurrence: None)
  Receive Date: 20110720
  Receipt Date: 20110719
  Transmission Date: 20111222
  Serious: Yes (Hospitalization, Disabling)
  Sender: FDA-Public Use
  Company Number: DE-GLAXOSMITHKLINE-D0071685A

PATIENT
  Sex: Male
  Weight: 56 kg

DRUGS (6)
  1. HEPARIN SODIUM [Suspect]
     Indication: PERIPHERAL ARTERIAL OCCLUSIVE DISEASE
     Route: 065
     Dates: start: 20110407
  2. UROKINASE [Concomitant]
     Route: 065
     Dates: start: 20110407
  3. PLAVIX [Concomitant]
     Route: 065
     Dates: start: 20110408, end: 20110418
  4. ARIXTRA [Suspect]
     Indication: PERIPHERAL ARTERIAL OCCLUSIVE DISEASE
     Dosage: 7.5MG PER DAY
     Route: 065
     Dates: start: 20110408, end: 20110418
  5. ALPROSTADIL [Suspect]
     Indication: CORONARY ARTERY BYPASS
     Route: 065
     Dates: start: 20110406, end: 20110418
  6. ASPIRIN [Concomitant]
     Dosage: 100MG PER DAY
     Route: 065
     Dates: start: 20110411, end: 20110418

REACTIONS (8)
  - PARESIS [None]
  - HAEMATOMA [None]
  - MUSCULOSKELETAL PAIN [None]
  - GAIT DISTURBANCE [None]
  - SPINAL LAMINECTOMY [None]
  - IMPAIRED HEALING [None]
  - HYPOAESTHESIA [None]
  - SPINAL CORD HAEMORRHAGE [None]
